FAERS Safety Report 9860451 (Version 1)
Quarter: 2014Q1

REPORT INFORMATION
  Report Type: Spontaneous
  Country: US (occurrence: US)
  Receive Date: 20140202
  Receipt Date: 20140202
  Transmission Date: 20141002
  Serious: Yes (Death)
  Sender: FDA-Public Use
  Company Number: CHPA2014US001598

PATIENT
  Age: 50 Year
  Sex: Female

DRUGS (5)
  1. ACETAMINOPHEN (PARACETAMOL) [Suspect]
     Route: 048
  2. DEXTROMETHORPHAN HYDROBROMIDE [Suspect]
     Route: 048
  3. METHADONE [Suspect]
     Route: 048
  4. OXYCODONE [Suspect]
     Route: 048
  5. HYDROCODONE [Suspect]
     Route: 048

REACTIONS (1)
  - Intentional drug misuse [Fatal]
